FAERS Safety Report 4431451-7 (Version None)
Quarter: 2004Q3

REPORT INFORMATION
  Report Type: 
  Country: None (occurrence: None)
  Receive Date: 20040820
  Receipt Date: 20040820
  Transmission Date: 20050211
  Serious: Yes (Other)
  Sender: FDA-Public Use
  Company Number: None

PATIENT
  Age: 55 Year
  Sex: Male
  Weight: 104.3273 kg

DRUGS (1)
  1. EQUATE EXTRA STRENGTH MENTHOL [Suspect]
     Indication: BACK PAIN
     Dosage: 1 PATCH 4 HOURS TOPICAL
     Route: 061
     Dates: start: 20040813, end: 20040813

REACTIONS (2)
  - APPLICATION SITE REACTION [None]
  - CHEMICAL BURN OF SKIN [None]
